FAERS Safety Report 8839293 (Version 1)
Quarter: 2012Q4

REPORT INFORMATION
  Report Type: 
  Country: US (occurrence: US)
  Receive Date: 20121015
  Receipt Date: 20121015
  Transmission Date: 20130627
  Serious: No
  Sender: FDA-Public Use
  Company Number: US-GLAXOSMITHKLINE-A0956228A

PATIENT
  Age: 22 Year
  Sex: Male

DRUGS (3)
  1. DUAC [Suspect]
     Indication: SCAR
     Route: 061
     Dates: start: 20110901, end: 20110906
  2. MINOCYCLINE [Concomitant]
  3. TRETINOIN CREAM [Concomitant]

REACTIONS (2)
  - Burning sensation [Not Recovered/Not Resolved]
  - Rash erythematous [Unknown]
